FAERS Safety Report 8190196-0 (Version None)
Quarter: 2012Q1

REPORT INFORMATION
  Report Type: 
  Country: None (occurrence: None)
  Receive Date: 20120305
  Receipt Date: 20120228
  Transmission Date: 20120608
  Serious: Yes (Other)
  Sender: FDA-Public Use
  Company Number: 2012-00074

PATIENT
  Age: 80 Year
  Sex: Male
  Weight: 86.1834 kg

DRUGS (3)
  1. AMLODIPINE [Concomitant]
  2. ZICAM COLD REMEDY ORAL MIST [Suspect]
     Indication: NASOPHARYNGITIS
     Dosage: SPRAYED 4 X ORALLY EVERY 3 HOURS
     Route: 048
     Dates: start: 20120101, end: 20120102
  3. SIMVASTATIN [Concomitant]

REACTIONS (1)
  - DYSARTHRIA [None]
